FAERS Safety Report 10155956 (Version 1)
Quarter: 2014Q2

REPORT INFORMATION
  Report Type: Spontaneous
  Country: US (occurrence: US)
  Receive Date: 20140506
  Receipt Date: 20140506
  Transmission Date: 20141212
  Serious: Yes (Hospitalization)
  Sender: FDA-Public Use
  Company Number: US-ACTELION-A-NJ2014-98348

PATIENT
  Age: 74 Year
  Sex: Female

DRUGS (11)
  1. VENTAVIS [Suspect]
     Indication: PULMONARY ARTERIAL HYPERTENSION
     Dosage: 5 MCG, 6-7/DAY
     Route: 055
     Dates: start: 20130816
  2. TRACLEER [Suspect]
     Indication: PULMONARY ARTERIAL HYPERTENSION
     Dosage: 125 MG, BID
     Route: 048
     Dates: start: 20130423
  3. PLAVIX [Concomitant]
     Dosage: 75 MG, QD
  4. LASIX [Concomitant]
     Dosage: 80 MG, BID
  5. ISOSORBIDE MONONITE [Concomitant]
     Dosage: 90 MG, QD
  6. TOPROL [Concomitant]
     Dosage: 50 MG, QD
  7. LOSARTAN [Concomitant]
     Dosage: 25 MG, QD
  8. ZETIA [Concomitant]
     Dosage: 10 MG, QD
  9. CRESTOR [Concomitant]
     Dosage: 10 MG, UNK
  10. IRON SULFATE [Concomitant]
     Dosage: 325 MG, QD
  11. INSULIN DETEMIR [Concomitant]
     Dosage: 50 U, UNK

REACTIONS (5)
  - Anaemia [Unknown]
  - Transfusion [Unknown]
  - Dyspnoea [Unknown]
  - Fatigue [Unknown]
  - Sputum discoloured [Unknown]
